FAERS Safety Report 4539698-6 (Version None)
Quarter: 2004Q4

REPORT INFORMATION
  Report Type: 
  Country: None (occurrence: None)
  Receive Date: 20041228
  Receipt Date: 20041213
  Transmission Date: 20050328
  Serious: Yes (Death, Hospitalization)
  Sender: FDA-Public Use
  Company Number: US-JNJFOC-20041104938

PATIENT
  Age: 93 Year
  Sex: Female

DRUGS (1)
  1. REMINYL [Suspect]
     Route: 049
     Dates: start: 20010901, end: 20041106

REACTIONS (4)
  - DEATH [None]
  - DEMENTIA ALZHEIMER'S TYPE [None]
  - HIP FRACTURE [None]
  - UPPER LIMB FRACTURE [None]
